FAERS Safety Report 13566063 (Version 1)
Quarter: 2017Q2

REPORT INFORMATION
  Report Type: Spontaneous
  Country: GB (occurrence: GB)
  Receive Date: 20170520
  Receipt Date: 20170520
  Transmission Date: 20170830
  Serious: Yes (Other)
  Sender: FDA-Public Use
  Company Number: GB-TEVA-767721ACC

PATIENT
  Age: 64 Year
  Sex: Male
  Weight: 86.2 kg

DRUGS (4)
  1. HUMULIN M3 [Suspect]
     Active Substance: INSULIN HUMAN
     Dosage: 48 IU (INTERNATIONAL UNIT) DAILY;
  2. METFORMIN [Suspect]
     Active Substance: METFORMIN HYDROCHLORIDE
     Dosage: 2 GRAM DAILY;
  3. SILDENAFIL CITRATE. [Concomitant]
     Active Substance: SILDENAFIL CITRATE
  4. PIOGLITAZONE HYDROCHLORIDE. [Suspect]
     Active Substance: PIOGLITAZONE HYDROCHLORIDE
     Indication: DIABETES MELLITUS
     Dosage: 45 MILLIGRAM DAILY; MORNING
     Route: 048
     Dates: start: 20150519, end: 20170421

REACTIONS (4)
  - Acute myocardial infarction [Unknown]
  - Dyspnoea [Unknown]
  - Medication monitoring error [Unknown]
  - Cardiac failure [Recovering/Resolving]

NARRATIVE: CASE EVENT DATE: 20170420
